FAERS Safety Report 6136059-3 (Version None)
Quarter: 2009Q1

REPORT INFORMATION
  Report Type: 
  Country: None (occurrence: None)
  Receive Date: 20090330
  Receipt Date: 20090320
  Transmission Date: 20090719
  Serious: No
  Sender: FDA-Public Use
  Company Number: FR-JNJFOC-20090302506

PATIENT
  Sex: Female

DRUGS (3)
  1. SPORANOX [Suspect]
     Indication: ASPERGILLOSIS
     Route: 065
  2. RETINOID [Concomitant]
     Indication: KERATOSIS FOLLICULAR
     Route: 065
  3. UNSPECIFIED MEDICATION [Concomitant]
     Indication: RASH
     Route: 065

REACTIONS (1)
  - NO ADVERSE EVENT [None]
